FAERS Safety Report 17628968 (Version 21)
Quarter: 2023Q1

REPORT INFORMATION
  Report Type: Spontaneous
  Country: US (occurrence: US)
  Receive Date: 20200406
  Receipt Date: 20230331
  Transmission Date: 20230417
  Serious: Yes (Hospitalization, Other)
  Sender: FDA-Public Use
  Company Number: US-GLAXOSMITHKLINE-US2020AMR057933

PATIENT

DRUGS (18)
  1. ZEJULA [Suspect]
     Active Substance: NIRAPARIB
     Indication: Fallopian tube cancer
     Dosage: 100 MG, QD (QPM)
     Dates: start: 20200128
  2. ZEJULA [Suspect]
     Active Substance: NIRAPARIB
     Dosage: 200 MG, QD
     Dates: start: 20200301
  3. ZEJULA [Suspect]
     Active Substance: NIRAPARIB
     Dosage: 200 MG, QD, QPM
  4. ZEJULA [Suspect]
     Active Substance: NIRAPARIB
     Dosage: 100 MG, QD
     Dates: start: 20200305
  5. ZEJULA [Suspect]
     Active Substance: NIRAPARIB
     Dosage: 100 MG, QD
     Route: 048
  6. ZEJULA [Suspect]
     Active Substance: NIRAPARIB
     Dosage: 100 MG, QD
  7. ZEJULA [Suspect]
     Active Substance: NIRAPARIB
     Dosage: 100 MG, QD
  8. ZEJULA [Suspect]
     Active Substance: NIRAPARIB
     Dosage: 100 MG, QD
     Route: 048
  9. ZEJULA [Suspect]
     Active Substance: NIRAPARIB
     Dosage: 200 MG, QD
     Route: 048
     Dates: start: 20210614
  10. ZEJULA [Suspect]
     Active Substance: NIRAPARIB
     Dosage: 200 MG, QD
  11. ZEJULA [Suspect]
     Active Substance: NIRAPARIB
     Dosage: 200 MG, QD,( 2 CAPSULES)
  12. ZEJULA [Suspect]
     Active Substance: NIRAPARIB
     Dosage: 200 MG, QD
     Dates: end: 20230320
  13. KEYTRUDA [Suspect]
     Active Substance: PEMBROLIZUMAB
     Indication: Product used for unknown indication
     Dosage: UNK
  14. KEYTRUDA [Suspect]
     Active Substance: PEMBROLIZUMAB
     Dosage: DOUBLE DOSE (EVERY 6 WEEKS)
  15. COVID 19 VACCINE [Concomitant]
     Indication: COVID-19 prophylaxis
     Dosage: UNK
  16. GABAPENTIN [Concomitant]
     Active Substance: GABAPENTIN
     Indication: Product used for unknown indication
     Dosage: UNK
     Dates: start: 202111
  17. GABAPENTIN [Concomitant]
     Active Substance: GABAPENTIN
     Dosage: 1 DF (DOWN TO 1 TAB IN THE LAST MONTH)
     Dates: start: 202202
  18. CBD CREAM (BRAND/FORMULATION UNKNOWN) [Concomitant]
     Indication: Product used for unknown indication
     Dosage: UNK

REACTIONS (28)
  - Recurrent cancer [Not Recovered/Not Resolved]
  - Neuropathy peripheral [Unknown]
  - Headache [Not Recovered/Not Resolved]
  - Hypertension [Unknown]
  - Chills [Recovering/Resolving]
  - Arthralgia [Not Recovered/Not Resolved]
  - Fatigue [Not Recovered/Not Resolved]
  - Liver function test increased [Unknown]
  - Alopecia [Unknown]
  - Hypertrichosis [Unknown]
  - Hot flush [Unknown]
  - Onychoclasis [Unknown]
  - Vaginal discharge [Not Recovered/Not Resolved]
  - Carbohydrate antigen 125 increased [Recovering/Resolving]
  - Hypotension [Not Recovered/Not Resolved]
  - Abdominal pain upper [Unknown]
  - Dyspepsia [Unknown]
  - Nervous system disorder [Unknown]
  - Bowel movement irregularity [Unknown]
  - Abdominal discomfort [Unknown]
  - Diarrhoea [Not Recovered/Not Resolved]
  - Myalgia [Not Recovered/Not Resolved]
  - Decreased activity [Not Recovered/Not Resolved]
  - Weight decreased [Not Recovered/Not Resolved]
  - Decreased appetite [Not Recovered/Not Resolved]
  - Drug ineffective [Unknown]
  - Off label use [Unknown]
  - Product dose omission issue [Unknown]
